FAERS Safety Report 14576265 (Version 1)
Quarter: 2018Q1

REPORT INFORMATION
  Report Type: Spontaneous
  Country: US (occurrence: US)
  Receive Date: 20180226
  Receipt Date: 20180226
  Transmission Date: 20180509
  Serious: Yes (Other)
  Sender: FDA-Public Use
  Company Number: None

PATIENT
  Age: 9 Year
  Sex: Male
  Weight: 42.64 kg

DRUGS (1)
  1. CONCERTA 54MG (GENERIC EQUIVALENT) [Suspect]
     Active Substance: METHYLPHENIDATE HYDROCHLORIDE
     Indication: ATTENTION DEFICIT/HYPERACTIVITY DISORDER
     Dosage: 1 TAB Q AM PO
     Route: 048

REACTIONS (13)
  - Emotional disorder [None]
  - Fear [None]
  - Abnormal behaviour [None]
  - Obsessive-compulsive disorder [None]
  - Overdose [None]
  - Educational problem [None]
  - Product substitution issue [None]
  - Anxiety [None]
  - Aggression [None]
  - Irritability [None]
  - Logorrhoea [None]
  - Palpitations [None]
  - Tic [None]

NARRATIVE: CASE EVENT DATE: 20180115
